FAERS Safety Report 22892571 (Version 2)
Quarter: 2023Q4

REPORT INFORMATION
  Report Type: Report from Study
  Country: FR (occurrence: FR)
  Receive Date: 20230901
  Receipt Date: 20231102
  Transmission Date: 20240110
  Serious: Yes (Hospitalization)
  Sender: FDA-Public Use
  Company Number: FR-JNJFOC-20230522353

PATIENT
  Age: 72 Year
  Sex: Male
  Weight: 85.5 kg

DRUGS (17)
  1. TALQUETAMAB [Suspect]
     Active Substance: TALQUETAMAB
     Indication: Plasma cell myeloma
     Dosage: CYCLE 1 DAY 2 (0.44 ML)
     Route: 058
     Dates: start: 20230425, end: 20230425
  2. TALQUETAMAB [Suspect]
     Active Substance: TALQUETAMAB
     Dosage: CYCLE 1 DAY 4  STEP-UP DOSE 2  (0.06 MG/KG)
     Route: 058
     Dates: start: 20230427, end: 20230427
  3. TALQUETAMAB [Suspect]
     Active Substance: TALQUETAMAB
     Dosage: REPEATED
     Route: 058
     Dates: start: 20230505, end: 20230505
  4. TALQUETAMAB [Suspect]
     Active Substance: TALQUETAMAB
     Route: 058
     Dates: start: 20230509, end: 20230509
  5. DARATUMUMAB [Suspect]
     Active Substance: DARATUMUMAB
     Indication: Plasma cell myeloma
     Route: 058
     Dates: start: 20230424, end: 20230424
  6. DEXAMETHASONE [Concomitant]
     Active Substance: DEXAMETHASONE
     Indication: Premedication
     Dosage: CYCLE 1 DAY 1
     Route: 048
     Dates: start: 20230424, end: 20230424
  7. DEXAMETHASONE [Concomitant]
     Active Substance: DEXAMETHASONE
     Dosage: CYCLE 1 DAY 2
     Route: 042
     Dates: start: 20230425, end: 20230425
  8. CETIRIZINE [Concomitant]
     Active Substance: CETIRIZINE HYDROCHLORIDE
     Indication: Premedication
     Dosage: CYCLE 1 DAY 1
     Route: 048
     Dates: start: 20230424, end: 20230424
  9. CETIRIZINE [Concomitant]
     Active Substance: CETIRIZINE HYDROCHLORIDE
     Dosage: CYCLE 1 DAY 2
     Route: 048
     Dates: start: 20230425, end: 20230425
  10. ACETAMINOPHEN [Concomitant]
     Active Substance: ACETAMINOPHEN
     Indication: Premedication
     Dosage: CYCLE 1 DAY 1
     Route: 048
     Dates: start: 20230424, end: 20230424
  11. ACETAMINOPHEN [Concomitant]
     Active Substance: ACETAMINOPHEN
     Dosage: CYCLE 1 DAY 2
     Route: 048
     Dates: start: 20230425, end: 20230425
  12. ELIQUIS [Concomitant]
     Active Substance: APIXABAN
     Indication: Thrombosis prophylaxis
     Route: 048
     Dates: start: 20230303
  13. BACTRIM [Concomitant]
     Active Substance: SULFAMETHOXAZOLE\TRIMETHOPRIM
     Indication: Antibiotic prophylaxis
     Route: 048
  14. HYDROCHLOROTHIAZIDE\RAMIPRIL [Concomitant]
     Active Substance: HYDROCHLOROTHIAZIDE\RAMIPRIL
     Indication: Hypertension
     Dosage: 5/12.5
     Route: 048
     Dates: start: 20230101
  15. DOLIPRANE [Concomitant]
     Active Substance: ACETAMINOPHEN
     Indication: Pain prophylaxis
     Route: 048
  16. CHOLECALCIFEROL [Concomitant]
     Active Substance: CHOLECALCIFEROL
     Indication: Vitamin supplementation
     Route: 048
  17. VALACYCLOVIR HYDROCHLORIDE [Concomitant]
     Active Substance: VALACYCLOVIR HYDROCHLORIDE
     Indication: Antiviral prophylaxis
     Route: 048

REACTIONS (1)
  - Hallucination, visual [Recovered/Resolved]

NARRATIVE: CASE EVENT DATE: 20230426
